FAERS Safety Report 14382394 (Version 3)
Quarter: 2018Q1

REPORT INFORMATION
  Report Type: Spontaneous
  Country: US (occurrence: US)
  Receive Date: 20180112
  Receipt Date: 20180116
  Transmission Date: 20180509
  Serious: Yes (Other)
  Sender: FDA-Public Use
  Company Number: US-GEHC-2018CSU000139

PATIENT
  Age: 62 Year
  Sex: Male
  Weight: 91 kg

DRUGS (3)
  1. OXYCODONE [Concomitant]
     Active Substance: OXYCODONE
  2. MORPHINE [Concomitant]
     Active Substance: MORPHINE
  3. OMNIPAQUE [Suspect]
     Active Substance: IOHEXOL
     Indication: METASTATIC RENAL CELL CARCINOMA
     Dosage: 100 ML, SINGLE
     Route: 042
     Dates: start: 20180109, end: 20180109

REACTIONS (1)
  - Contrast media allergy [Recovered/Resolved]

NARRATIVE: CASE EVENT DATE: 20180109
